FAERS Safety Report 11610814 (Version 1)
Quarter: 2015Q4

REPORT INFORMATION
  Report Type: Spontaneous
  Country: US (occurrence: US)
  Receive Date: 20151008
  Receipt Date: 20151008
  Transmission Date: 20160304
  Serious: Yes (Hospitalization, Other)
  Sender: FDA-Public Use
  Company Number: US-ACTAVIS-2015-21237

PATIENT
  Age: 64 Year
  Sex: Female

DRUGS (8)
  1. XELODA [Suspect]
     Active Substance: CAPECITABINE
     Indication: BREAST CANCER METASTATIC
     Dosage: UNKNOWN
     Route: 065
     Dates: start: 2012
  2. AFINITOR [Suspect]
     Active Substance: EVEROLIMUS
     Indication: BREAST CANCER METASTATIC
     Dosage: UNKNOWN
     Route: 065
     Dates: start: 2015
  3. AROMASIN [Suspect]
     Active Substance: EXEMESTANE
     Indication: BREAST CANCER METASTATIC
     Dosage: UNKNOWN
     Route: 065
     Dates: start: 201505
  4. ABRAXANE [Suspect]
     Active Substance: PACLITAXEL
     Indication: BREAST CANCER METASTATIC
     Dosage: UNKNOWN
     Route: 065
     Dates: start: 201003
  5. FASLODEX [Suspect]
     Active Substance: FULVESTRANT
     Indication: BREAST CANCER METASTATIC
     Dosage: UNKNOWN
     Route: 065
  6. TAMOXIFEN CITRATE (ACTAVIS LABORATORIES FL) [Suspect]
     Active Substance: TAMOXIFEN CITRATE
     Indication: BREAST CANCER METASTATIC
     Dosage: UNKNOWN
     Route: 065
     Dates: start: 201308
  7. ARIMIDEX [Suspect]
     Active Substance: ANASTROZOLE
     Indication: BREAST CANCER METASTATIC
     Dosage: UNKNOWN
     Route: 065
  8. TAXOTERE [Suspect]
     Active Substance: DOCETAXEL
     Indication: BREAST CANCER METASTATIC
     Dosage: UNKNOWN WEEKLY DOSE
     Route: 065
     Dates: start: 201302, end: 201308

REACTIONS (19)
  - Metastases to bone [Unknown]
  - Metastases to liver [Unknown]
  - Skin exfoliation [Unknown]
  - Pleural effusion [Recovering/Resolving]
  - Fatigue [Unknown]
  - Hyperadrenalism [Unknown]
  - Bacteraemia [Unknown]
  - Decreased appetite [Unknown]
  - Peripheral swelling [Unknown]
  - Malaise [Unknown]
  - Hypotension [Unknown]
  - Dizziness [Unknown]
  - Pneumonia [Recovering/Resolving]
  - Dysgeusia [Unknown]
  - Stomatitis [Unknown]
  - Dyspnoea [Unknown]
  - Hypoxia [Unknown]
  - Skin reaction [Unknown]
  - Dyspnoea exertional [Unknown]

NARRATIVE: CASE EVENT DATE: 20150821
